FAERS Safety Report 4946314-8 (Version None)
Quarter: 2006Q1

REPORT INFORMATION
  Report Type: 
  Country: None (occurrence: None)
  Receive Date: 20060316
  Receipt Date: 20060316
  Transmission Date: 20060701
  Serious: No
  Sender: FDA-Public Use
  Company Number: None

PATIENT
  Sex: Female
  Weight: 70.3075 kg

DRUGS (1)
  1. AMBIEN [Suspect]
     Indication: INSOMNIA
     Dosage: 10 MG   PRN   PO
     Route: 048

REACTIONS (9)
  - COORDINATION ABNORMAL [None]
  - HALLUCINATION [None]
  - IMPAIRED HEALING [None]
  - INSOMNIA [None]
  - SCAR [None]
  - SELF INJURIOUS BEHAVIOUR [None]
  - SKIN HAEMORRHAGE [None]
  - SKIN LACERATION [None]
  - VISUAL DISTURBANCE [None]
